APPROVED DRUG PRODUCT: CARVEDILOL PHOSPHATE
Active Ingredient: CARVEDILOL PHOSPHATE
Strength: 20MG
Dosage Form/Route: CAPSULE, EXTENDED RELEASE;ORAL
Application: A090132 | Product #002 | TE Code: AB
Applicant: SUN PHARMACEUTICAL INDUSTRIES INC
Approved: Oct 25, 2017 | RLD: No | RS: No | Type: RX